FAERS Safety Report 4935158-9 (Version None)
Quarter: 2006Q1

REPORT INFORMATION
  Report Type: 
  Country: None (occurrence: None)
  Receive Date: 20060302
  Receipt Date: 20060220
  Transmission Date: 20060701
  Serious: Yes (Hospitalization, Other)
  Sender: FDA-Public Use
  Company Number: 2006024808

PATIENT
  Sex: Male
  Weight: 104.3273 kg

DRUGS (7)
  1. NORVASC [Suspect]
     Indication: HYPERTENSION
     Dosage: 5 MG (5 MG, DAILY, INTERVAL:  EVERY DAY),
  2. CARDURA [Suspect]
     Indication: HYPERTENSION
     Dosage: 4 MG (4 MG, DAILY, INTERVAL:  EVERY DAY),
  3. DILANTIN [Suspect]
     Indication: CONVULSION
     Dosage: 600 MG (100 MG, BID, INTERVAL:  EVERY DAY),
  4. DEPAKOTE [Concomitant]
  5. FUROSEMIDE [Concomitant]
  6. HYZAAR [Concomitant]
  7. FOLIC ACID [Concomitant]

REACTIONS (8)
  - BLOOD PRESSURE INADEQUATELY CONTROLLED [None]
  - CONVULSION [None]
  - CRUSH INJURY [None]
  - DRUG EFFECT DECREASED [None]
  - FALL [None]
  - HYPERTENSION [None]
  - PAIN [None]
  - UPPER LIMB FRACTURE [None]
